FAERS Safety Report 25017896 (Version 1)
Quarter: 2025Q1

REPORT INFORMATION
  Report Type: Spontaneous
  Country: US (occurrence: None)
  Receive Date: 20250226
  Receipt Date: 20250226
  Transmission Date: 20250408
  Serious: Yes (Other)
  Sender: FDA-CTU
  Company Number: None

PATIENT
  Age: 69 Year
  Sex: Male
  Weight: 67.5 kg

DRUGS (1)
  1. NATURAL HONEY LEMON WITH ECHINACEA COUGH SUPPRESSANT THROAT DROPS [Suspect]
     Active Substance: MENTHOL
     Indication: Cough
     Route: 048
     Dates: start: 20250220, end: 20250222

REACTIONS (2)
  - Dry mouth [None]
  - Product formulation issue [None]

NARRATIVE: CASE EVENT DATE: 20250221
